FAERS Safety Report 9779231 (Version 1)
Quarter: 2013Q4

REPORT INFORMATION
  Report Type: Spontaneous
  Country: US (occurrence: US)
  Receive Date: 20131223
  Receipt Date: 20131223
  Transmission Date: 20140711
  Serious: Yes (Hospitalization)
  Sender: FDA-Public Use
  Company Number: PHEH2013US026159

PATIENT
  Age: 91 Year
  Sex: 0

DRUGS (1)
  1. CO-DIOVAN [Suspect]
     Dosage: UNK

REACTIONS (3)
  - Loss of consciousness [Unknown]
  - Confusional state [Unknown]
  - Electrocardiogram abnormal [Unknown]
